FAERS Safety Report 8221327-1 (Version None)
Quarter: 2012Q1

REPORT INFORMATION
  Report Type: 
  Country: None (occurrence: None)
  Receive Date: 20120320
  Receipt Date: 20120316
  Transmission Date: 20120608
  Serious: Yes (Death, Other)
  Sender: FDA-Public Use
  Company Number: PHEH2009US10768

PATIENT
  Sex: Male

DRUGS (13)
  1. DEXAMETHASONE [Concomitant]
  2. PROSCAR [Concomitant]
  3. REVLIMID [Concomitant]
  4. ASPIRIN [Concomitant]
  5. OXYCODONE HCL AND ACETAMINOPHEN [Concomitant]
  6. CYMBALTA [Concomitant]
  7. XANAX [Concomitant]
  8. ZOMETA [Suspect]
  9. EFFEXOR [Concomitant]
  10. PROTONIX [Concomitant]
  11. NEXIUM [Concomitant]
  12. AREDIA [Suspect]
     Route: 042
  13. BACTRIM [Concomitant]

REACTIONS (21)
  - OSTEOMYELITIS [None]
  - GINGIVAL BLEEDING [None]
  - LUNG ADENOCARCINOMA STAGE III [None]
  - RIB FRACTURE [None]
  - PARAESTHESIA [None]
  - MUSCULOSKELETAL DISCOMFORT [None]
  - LYMPHADENOPATHY MEDIASTINAL [None]
  - EXPOSED BONE IN JAW [None]
  - PULMONARY MASS [None]
  - HIATUS HERNIA [None]
  - OSTEONECROSIS OF JAW [None]
  - TOOTH LOSS [None]
  - OBSTRUCTIVE AIRWAYS DISORDER [None]
  - METASTASES TO ADRENALS [None]
  - GASTRIC ULCER [None]
  - METASTASES TO BONE [None]
  - OSTEITIS [None]
  - DYSPNOEA [None]
  - OSTEOARTHRITIS [None]
  - GINGIVITIS [None]
  - NEOPLASM MALIGNANT [None]
